FAERS Safety Report 8262359 (Version 4)
Quarter: 2016Q2

REPORT INFORMATION
  Report Type: Spontaneous
  Country: DE (occurrence: DE)
  Receive Date: 20111123
  Receipt Date: 20160607
  Transmission Date: 20160815
  Serious: Yes (Other)
  Sender: FDA-Public Use
  Company Number: DE-ROCHE-1014776

PATIENT
  Age: 51 Year
  Sex: Female

DRUGS (7)
  1. XOLAIR [Suspect]
     Active Substance: OMALIZUMAB
     Route: 058
     Dates: start: 20060220, end: 20110509
  2. HYDROCORTISON [Concomitant]
     Active Substance: HYDROCORTISONE
     Indication: SECONDARY ADRENOCORTICAL INSUFFICIENCY
     Route: 048
     Dates: start: 2003
  3. JUNIK [Concomitant]
     Active Substance: BECLOMETHASONE DIPROPIONATE
     Indication: ASTHMA
     Route: 055
     Dates: start: 2002
  4. XOLAIR [Suspect]
     Active Substance: OMALIZUMAB
     Route: 058
     Dates: start: 20110509, end: 20110509
  5. XOLAIR [Suspect]
     Active Substance: OMALIZUMAB
     Indication: ASTHMA
     Route: 058
     Dates: start: 2005
  6. SALBUTAMOL [Concomitant]
     Active Substance: ALBUTEROL
     Indication: ASTHMA
     Dosage: PRN
     Route: 055
     Dates: start: 2000
  7. LIQUORICE [Concomitant]
     Active Substance: LICORICE
     Indication: PRODUCT USED FOR UNKNOWN INDICATION
     Dosage: 200 MG (ONCE)
     Route: 048

REACTIONS (17)
  - Drug hypersensitivity [Recovered/Resolved]
  - Erythema [Unknown]
  - Eye pruritus [Unknown]
  - Sneezing [Unknown]
  - Asthma [Recovering/Resolving]
  - Choking [Unknown]
  - Pruritus [Unknown]
  - Respiratory failure [Unknown]
  - Upper airway obstruction [Unknown]
  - Hypersensitivity [Unknown]
  - Anaphylactic reaction [Recovered/Resolved]
  - Dizziness [Unknown]
  - Food allergy [Recovered/Resolved]
  - Nausea [Unknown]
  - Seasonal allergy [Unknown]
  - Cough [Unknown]
  - Swelling face [Unknown]

NARRATIVE: CASE EVENT DATE: 201108
